FAERS Safety Report 8328509-9 (Version None)
Quarter: 2012Q2

REPORT INFORMATION
  Report Type: 
  Country: None (occurrence: None)
  Receive Date: 20120430
  Receipt Date: 20120417
  Transmission Date: 20120825
  Serious: Yes (Hospitalization, Other)
  Sender: FDA-Public Use
  Company Number: AUR-APL-2012-01876

PATIENT
  Age: 42 Year
  Sex: Female
  Weight: 42 kg

DRUGS (11)
  1. PENTASA [Concomitant]
  2. ALBUTEROL SULFATE [Concomitant]
  3. TINZAPARIN (TINZAPARIN) [Concomitant]
  4. PIPERACILLIN AND TAZOBACTAM [Suspect]
     Indication: ABDOMINAL SEPSIS
     Dosage: (13.5 GM, D), INTRAVENOUS
     Route: 042
     Dates: start: 20111014, end: 20111020
  5. MEROPENEM [Concomitant]
  6. MORPHINE [Concomitant]
  7. ACETAMINOPHEN [Suspect]
     Indication: POSTOPERATIVE ANALGESIA
     Dosage: 4 GM, (1 GM, 1 IN 6 HR), INTRAVENOUS
     Route: 042
     Dates: start: 20111014
  8. METRONIDAZOLE [Concomitant]
  9. OMEPRAZOLE [Concomitant]
  10. FUROSEMIDE [Concomitant]
  11. POTASSIUM CHLORIDE [Concomitant]

REACTIONS (6)
  - LIVER FUNCTION TEST ABNORMAL [None]
  - ASPARTATE AMINOTRANSFERASE INCREASED [None]
  - BLOOD ALKALINE PHOSPHATASE INCREASED [None]
  - GAMMA-GLUTAMYLTRANSFERASE INCREASED [None]
  - COAGULOPATHY [None]
  - OVERDOSE [None]
